FAERS Safety Report 10384486 (Version 1)
Quarter: 2014Q3

REPORT INFORMATION
  Report Type: Spontaneous
  Country: DK (occurrence: CH)
  Receive Date: 20140814
  Receipt Date: 20140814
  Transmission Date: 20150326
  Serious: Yes (Other)
  Sender: FDA-Public Use
  Company Number: CH-FRI-1000069788

PATIENT
  Sex: Female

DRUGS (9)
  1. ESCITALOPRAM [Suspect]
     Active Substance: ESCITALOPRAM OXALATE
     Dosage: 10 MG
     Route: 048
     Dates: start: 20140612
  2. ZYPREXA [Suspect]
     Active Substance: OLANZAPINE
     Dosage: 1.25 MG
     Route: 048
     Dates: start: 20140612
  3. VOLTAREN [Suspect]
     Active Substance: DICLOFENAC SODIUM
     Indication: PSYCHOGENIC PAIN DISORDER
     Dosage: 150 MG
     Route: 048
     Dates: end: 201406
  4. CO-DAFALGAN [Suspect]
     Active Substance: ACETAMINOPHEN\CODEINE PHOSPHATE
     Indication: PSYCHOGENIC PAIN DISORDER
     Dosage: 2000 MG
     Route: 048
     Dates: end: 201406
  5. TEMESTA [Concomitant]
     Active Substance: LORAZEPAM
     Route: 048
     Dates: start: 2013
  6. ESCITALOPRAM [Suspect]
     Active Substance: ESCITALOPRAM OXALATE
     Indication: SOMATOFORM DISORDER
     Dosage: 20 MG
     Route: 048
     Dates: start: 2013
  7. ZYPREXA [Suspect]
     Active Substance: OLANZAPINE
     Indication: HALLUCINATION
     Dosage: 2.5 MG
     Route: 048
     Dates: start: 2013
  8. FLURAZEPAM [Concomitant]
     Active Substance: FLURAZEPAM\FLURAZEPAM HYDROCHLORIDE
     Dosage: 30 MG
     Route: 048
     Dates: start: 2013
  9. TRANXILIUM [Concomitant]
     Active Substance: CLORAZEPATE DIPOTASSIUM
     Dosage: 5 MG
     Route: 048
     Dates: start: 2013

REACTIONS (2)
  - Hepatocellular injury [Not Recovered/Not Resolved]
  - Off label use [Not Recovered/Not Resolved]

NARRATIVE: CASE EVENT DATE: 20140527
